FAERS Safety Report 19067576 (Version 3)
Quarter: 2021Q3

REPORT INFORMATION
  Report Type: Report from Study
  Country: JP (occurrence: JP)
  Receive Date: 20210329
  Receipt Date: 20210722
  Transmission Date: 20211014
  Serious: Yes (Death, Life-Threatening, Hospitalization, Other)
  Sender: FDA-Public Use
  Company Number: JP-JNJFOC-A-CH2017-153936

PATIENT
  Age: 24 Year
  Sex: Female
  Weight: 37.7 kg

DRUGS (30)
  1. FERROMIA [Concomitant]
     Active Substance: SODIUM FERROUS CITRATE
     Indication: ANAEMIA
     Route: 048
     Dates: start: 20141113
  2. OXYGEN. [Concomitant]
     Active Substance: OXYGEN
     Route: 055
  3. BIO?THREE [Concomitant]
     Active Substance: HERBALS
     Dates: start: 20170622, end: 20180625
  4. GLUCONSAN K [Concomitant]
     Active Substance: POTASSIUM GLUCONATE
     Indication: HYPOKALAEMIA
     Dosage: 9 G, QD
     Dates: start: 20180625, end: 20180625
  5. UPTRAVI [Suspect]
     Active Substance: SELEXIPAG
     Dosage: 0.6 MG, BID
     Route: 048
     Dates: start: 20180209, end: 20180214
  6. TANATRIL [Concomitant]
     Active Substance: IMIDAPRIL
     Indication: HYPERTENSION
  7. FERROUS CITRATE NA [Concomitant]
     Active Substance: SODIUM FERROUS CITRATE
     Indication: ANAEMIA
     Route: 048
     Dates: start: 20141113
  8. TAKECAB [Concomitant]
     Active Substance: VONOPRAZAN FUMARATE
     Indication: GASTRITIS
     Dosage: 20 MG, QD
     Dates: start: 20180622, end: 20180624
  9. SAMSCA [Concomitant]
     Active Substance: TOLVAPTAN
     Indication: CARDIAC FAILURE
  10. TANATRIL [Concomitant]
     Active Substance: IMIDAPRIL
     Indication: RIGHT VENTRICULAR FAILURE
     Route: 048
     Dates: start: 20140814
  11. SAMSCA [Concomitant]
     Active Substance: TOLVAPTAN
     Indication: RIGHT VENTRICULAR FAILURE
     Dosage: 3.75 MG, QD
     Route: 048
     Dates: start: 20160924
  12. BERASUS [Concomitant]
     Active Substance: BERAPROST SODIUM
     Indication: PULMONARY ARTERIAL HYPERTENSION
     Route: 048
     Dates: start: 20090814
  13. LUPRAC [Concomitant]
     Active Substance: TORSEMIDE
     Indication: RIGHT VENTRICULAR FAILURE
     Route: 048
     Dates: start: 20130829, end: 20160916
  14. SPIRONOLACTON [Concomitant]
     Active Substance: SPIRONOLACTONE
     Indication: RIGHT VENTRICULAR FAILURE
     Route: 048
     Dates: start: 20130926, end: 20180621
  15. OPSUMIT [Suspect]
     Active Substance: MACITENTAN
     Dosage: 5 MG, QD
     Route: 048
  16. UPTRAVI [Suspect]
     Active Substance: SELEXIPAG
     Dosage: 0.4 MG, BID
     Route: 048
     Dates: start: 20180112, end: 20180208
  17. UPTRAVI [Suspect]
     Active Substance: SELEXIPAG
     Dosage: 0.4 MG, BID
     Route: 048
     Dates: start: 20180215, end: 20180621
  18. ADEMPAS [Suspect]
     Active Substance: RIOCIGUAT
     Indication: PULMONARY ARTERIAL HYPERTENSION
     Dosage: 4 MG, QD
     Route: 048
     Dates: start: 20170824, end: 20180621
  19. FAMOTIDINE. [Concomitant]
     Active Substance: FAMOTIDINE
     Indication: GASTRITIS
     Route: 048
     Dates: start: 20160725
  20. FLUTRAN [Suspect]
     Active Substance: FLUOCINOLONE ACETONIDE
     Indication: CARDIAC FAILURE
  21. ADCIRCA [Concomitant]
     Active Substance: TADALAFIL
     Indication: PULMONARY ARTERIAL HYPERTENSION
     Route: 048
     Dates: start: 20110322
  22. SPIRONOLACTON [Concomitant]
     Active Substance: SPIRONOLACTONE
     Indication: CARDIAC FAILURE
  23. FUROSEMIDE. [Concomitant]
     Active Substance: FUROSEMIDE
     Indication: CARDIAC FAILURE
  24. OPSUMIT [Suspect]
     Active Substance: MACITENTAN
     Indication: PULMONARY ARTERIAL HYPERTENSION
     Dosage: 10 MG, QD
     Route: 048
     Dates: start: 20160324
  25. FLUTRAN [Suspect]
     Active Substance: FLUOCINOLONE ACETONIDE
     Indication: OEDEMA DUE TO CARDIAC DISEASE
  26. UPTRAVI [Suspect]
     Active Substance: SELEXIPAG
     Indication: PULMONARY ARTERIAL HYPERTENSION
     Dosage: 0.2 MG, BID
     Route: 048
     Dates: start: 20171229, end: 20180111
  27. FLUTRAN [Suspect]
     Active Substance: FLUOCINOLONE ACETONIDE
     Indication: MITRAL VALVE INCOMPETENCE
     Dosage: 2 MG, QD
     Route: 048
     Dates: start: 20170928, end: 20180621
  28. VENTAVIS [Concomitant]
     Active Substance: ILOPROST
     Indication: PULMONARY ARTERIAL HYPERTENSION
     Route: 055
     Dates: start: 20170310
  29. TEPRENONE [Concomitant]
     Active Substance: TEPRENONE
     Indication: GASTRITIS
     Route: 048
     Dates: start: 20160902
  30. FUROSEMIDE. [Concomitant]
     Active Substance: FUROSEMIDE
     Indication: RIGHT VENTRICULAR FAILURE
     Route: 048
     Dates: start: 20160917

REACTIONS (17)
  - Renal failure [Not Recovered/Not Resolved]
  - Red blood cell count decreased [Unknown]
  - Hypotension [Recovered/Resolved]
  - Ascites [Not Recovered/Not Resolved]
  - Endoscopy [Unknown]
  - Haemoglobin decreased [Unknown]
  - Anuria [Not Recovered/Not Resolved]
  - Back pain [Recovered/Resolved]
  - Pulmonary arterial hypertension [Fatal]
  - Oedema [Not Recovered/Not Resolved]
  - Melaena [Unknown]
  - Transfusion [Unknown]
  - White blood cell count decreased [Not Recovered/Not Resolved]
  - Haematemesis [Recovering/Resolving]
  - Diarrhoea [Not Recovered/Not Resolved]
  - Pain in jaw [Recovered/Resolved]
  - Condition aggravated [Fatal]

NARRATIVE: CASE EVENT DATE: 20160902
